FAERS Safety Report 8188514-2 (Version None)
Quarter: 2012Q1

REPORT INFORMATION
  Report Type: 
  Country: None (occurrence: None)
  Receive Date: 20120306
  Receipt Date: 20120302
  Transmission Date: 20120608
  Serious: Yes (Other)
  Sender: FDA-Public Use
  Company Number: PHEH2011US04574

PATIENT
  Sex: Female
  Weight: 81.633 kg

DRUGS (4)
  1. PRAVASTATIN [Concomitant]
  2. PROZAC [Concomitant]
  3. BENADRYL [Concomitant]
  4. GILENYA [Suspect]
     Indication: MULTIPLE SCLEROSIS RELAPSE
     Dosage: 0.5 MG, QD
     Route: 048
     Dates: start: 20110801

REACTIONS (7)
  - LOSS OF CONTROL OF LEGS [None]
  - OPTIC NEURITIS [None]
  - CENTRAL NERVOUS SYSTEM LESION [None]
  - DYSPHAGIA [None]
  - CEREBROVASCULAR ACCIDENT [None]
  - VISUAL ACUITY REDUCED [None]
  - DYSARTHRIA [None]
